FAERS Safety Report 24122902 (Version 1)
Quarter: 2024Q3

REPORT INFORMATION
  Report Type: Spontaneous
  Country: FR (occurrence: FR)
  Receive Date: 20240723
  Receipt Date: 20240723
  Transmission Date: 20241017
  Serious: No
  Sender: ALKEM
  Company Number: FR-ALKEM LABORATORIES LIMITED-FR-ALKEM-2023-07796

PATIENT
  Sex: Female

DRUGS (1)
  1. DRONABINOL [Suspect]
     Active Substance: DRONABINOL
     Indication: Neuralgia
     Dosage: 5 MILLIGRAM, QD (DAILY) (SOFT CAPSULE)
     Route: 048
     Dates: start: 20230527, end: 20230628

REACTIONS (3)
  - Vertigo [Unknown]
  - Nausea [Unknown]
  - Therapeutic response decreased [Unknown]
